FAERS Safety Report 18365320 (Version 1)
Quarter: 2020Q4

REPORT INFORMATION
  Report Type: Spontaneous
  Country: US (occurrence: US)
  Receive Date: 20201009
  Receipt Date: 20201009
  Transmission Date: 20210114
  Serious: Yes (Other)
  Sender: FDA-Public Use
  Company Number: None

PATIENT
  Sex: Male

DRUGS (6)
  1. GLUCOSAMINE CAP 500MG [Concomitant]
  2. ATORVASTATINTAB 40MG [Concomitant]
  3. MULTIPLE VIT TAB [Concomitant]
  4. ABIRATERONE ACETATE. [Suspect]
     Active Substance: ABIRATERONE ACETATE
     Indication: PROSTATE CANCER
     Route: 048
     Dates: start: 20200821
  5. LISINOPRIL TAB 40MG [Concomitant]
  6. CARVEDILOL TAB 6.25MG [Concomitant]
     Active Substance: CARVEDILOL

REACTIONS (2)
  - Hypertension [None]
  - Skin cancer [None]
